FAERS Safety Report 19169365 (Version 1)
Quarter: 2021Q2

REPORT INFORMATION
  Report Type: Other
  Country: US (occurrence: US)
  Receive Date: 20210422
  Receipt Date: 20210422
  Transmission Date: 20210717
  Serious: Yes (Hospitalization)
  Sender: FDA-Public Use
  Company Number: US-ROCHE-2815333

PATIENT
  Age: 53 Year
  Sex: Female

DRUGS (1)
  1. OCREVUS [Suspect]
     Active Substance: OCRELIZUMAB
     Indication: RELAPSING MULTIPLE SCLEROSIS
     Dosage: 24/AUG/2017, 28/JAN/2018, 15/FEB/2018, 16/AUG/2018, 14/FEB/2019, 15/AUG/2019, 13/FEB/2020,06/OCT/20
     Route: 065
     Dates: start: 20170810

REACTIONS (3)
  - Malaise [Unknown]
  - Infection [Not Recovered/Not Resolved]
  - Immune system disorder [Unknown]

NARRATIVE: CASE EVENT DATE: 20201006
